FAERS Safety Report 5587704-2 (Version None)
Quarter: 2007Q4

REPORT INFORMATION
  Report Type: 
  Country: None (occurrence: None)
  Receive Date: 20071207
  Receipt Date: 20071105
  Transmission Date: 20080405
  Serious: Yes (Hospitalization, Other)
  Sender: FDA-Public Use
  Company Number: 07-470

PATIENT
  Age: 69 Year
  Sex: Female
  Weight: 66.6788 kg

DRUGS (1)
  1. ALEVE [Suspect]
     Dosage: 220 MG, DAILY, ORAL
     Route: 048
     Dates: start: 20071028

REACTIONS (1)
  - HYPERSENSITIVITY [None]
